FAERS Safety Report 16252204 (Version 1)
Quarter: 2019Q2

REPORT INFORMATION
  Report Type: Spontaneous
  Country: PT (occurrence: PT)
  Receive Date: 20190429
  Receipt Date: 20190429
  Transmission Date: 20190711
  Serious: Yes (Other)
  Sender: FDA-Public Use
  Company Number: PT-TEVA-2019-PT-1044938

PATIENT
  Age: 73 Year
  Sex: Male

DRUGS (2)
  1. SILODYX [Suspect]
     Active Substance: SILODOSIN
     Indication: BENIGN PROSTATIC HYPERPLASIA
     Dosage: 8 MILLIGRAM DAILY; 1 EVENING
     Route: 048
     Dates: start: 20190402
  2. DUTASTERIDA CICLUM [Suspect]
     Active Substance: DUTASTERIDE
     Indication: BENIGN PROSTATIC HYPERPLASIA
     Dosage: .5 MILLIGRAM DAILY; 1 AM
     Route: 048
     Dates: start: 20190402

REACTIONS (3)
  - Chest discomfort [Recovering/Resolving]
  - Abdominal discomfort [Recovering/Resolving]
  - Dyspnoea [Recovering/Resolving]

NARRATIVE: CASE EVENT DATE: 20190404
